FAERS Safety Report 9607796 (Version 1)
Quarter: 2013Q4

REPORT INFORMATION
  Report Type: Spontaneous
  Country: FR (occurrence: None)
  Receive Date: 20131007
  Receipt Date: 20131007
  Transmission Date: 20140711
  Serious: Yes (Other)
  Sender: FDA-Public Use
  Company Number: CLINIGEN-003057

PATIENT
  Age: 10 Year
  Sex: Female

DRUGS (2)
  1. FOSCAVIR (FOSCAVIR) [Suspect]
     Indication: HERPES VIRUS INFECTION
     Dosage: (NOT OTHERWISE SPECIFIED)
     Route: 042
     Dates: start: 20130724
  2. SERUM PHYSIOLOGICAL [Concomitant]

REACTIONS (6)
  - Nausea [None]
  - Dizziness [None]
  - Hypokalaemia [None]
  - Hypocalcaemia [None]
  - Accidental overdose [None]
  - Incorrect drug administration rate [None]
